FAERS Safety Report 12624582 (Version 1)
Quarter: 2016Q3

REPORT INFORMATION
  Report Type: Spontaneous
  Country: US (occurrence: None)
  Receive Date: 20160804
  Receipt Date: 20160804
  Transmission Date: 20161109
  Serious: Yes (Life-Threatening, Hospitalization)
  Sender: FDA-Public Use
  Company Number: None

PATIENT
  Age: 22 Year
  Sex: Female

DRUGS (1)
  1. HYDROCODONE/APAP 5/325 [Suspect]
     Active Substance: ACETAMINOPHEN\HYDROCODONE

REACTIONS (5)
  - Hyperhidrosis [None]
  - Dyspnoea [None]
  - Blood pressure decreased [None]
  - Diplopia [None]
  - Loss of consciousness [None]

NARRATIVE: CASE EVENT DATE: 20160729
